FAERS Safety Report 18491549 (Version 1)
Quarter: 2020Q4

REPORT INFORMATION
  Report Type: Spontaneous
  Country: HR (occurrence: HR)
  Receive Date: 20201111
  Receipt Date: 20201111
  Transmission Date: 20210114
  Serious: Yes (Other)
  Sender: FDA-Public Use
  Company Number: HR-DENTSPLY-2020SCDP000365

PATIENT

DRUGS (1)
  1. ISOPROPYL ALCOHOL. [Suspect]
     Active Substance: ISOPROPYL ALCOHOL
     Indication: STERILISATION
     Dosage: UNK
     Dates: start: 2020

REACTIONS (1)
  - Alcohol poisoning [Unknown]

NARRATIVE: CASE EVENT DATE: 2020
